FAERS Safety Report 8032349-8 (Version None)
Quarter: 2011Q4

REPORT INFORMATION
  Report Type: 
  Country: None (occurrence: None)
  Receive Date: 20111201
  Receipt Date: 20110901
  Transmission Date: 20120403
  Serious: Yes (Other)
  Sender: FDA-Public Use
  Company Number: 2011SP041511

PATIENT
  Age: 50 Year
  Sex: Female

DRUGS (9)
  1. SINGULAIR [Concomitant]
  2. LOSARTAN POTASSIUM [Concomitant]
  3. SERTRALINE HYDROCHLORIDE [Concomitant]
  4. NORVASC [Concomitant]
  5. ALPRAZOLAM [Concomitant]
  6. NEXIUM [Concomitant]
  7. VIVELLE [Concomitant]
  8. NASONEX [Suspect]
     Indication: RHINITIS ALLERGIC
     Dosage: 50 MCG; ;NAS
     Route: 045
     Dates: start: 20010101, end: 20110801
  9. TRIAMTERENE AND HYDROCHLOROTHIAZIDE [Concomitant]

REACTIONS (3)
  - UNDERDOSE [None]
  - CATARACT [None]
  - GLAUCOMA [None]
